FAERS Safety Report 18407161 (Version 3)
Quarter: 2020Q4

REPORT INFORMATION
  Report Type: Other
  Country: US (occurrence: US)
  Receive Date: 20201021
  Receipt Date: 20201216
  Transmission Date: 20210114
  Serious: Yes (Hospitalization)
  Sender: FDA-Public Use
  Company Number: US-ROCHE-2696121

PATIENT
  Age: 69 Year
  Sex: Female
  Weight: 64.92 kg

DRUGS (26)
  1. ROZLYTREK [Suspect]
     Active Substance: ENTRECTINIB
     Indication: METASTASES TO LIVER
     Route: 048
     Dates: start: 20200930
  2. ONDANSETRON HCL [Concomitant]
     Active Substance: ONDANSETRON HYDROCHLORIDE
     Dosage: FOR 30 DAYS
     Route: 048
     Dates: start: 20200908
  3. DITROPAN [Concomitant]
     Active Substance: OXYBUTYNIN CHLORIDE
     Route: 048
  4. AMLODIPINE BESYLATE. [Concomitant]
     Active Substance: AMLODIPINE BESYLATE
     Route: 048
  5. METOPROLOL SUCCINATE ER [Concomitant]
     Active Substance: METOPROLOL SUCCINATE
     Indication: PRODUCT USED FOR UNKNOWN INDICATION
     Dosage: 25 MG TABLET SR 24 HR ORAL DAILY
     Route: 048
  6. LASIX [Concomitant]
     Active Substance: FUROSEMIDE
     Indication: FLUID RETENTION
     Route: 048
     Dates: start: 202011
  7. DOK [Concomitant]
     Active Substance: DOCUSATE SODIUM
     Indication: CONSTIPATION
     Route: 048
  8. FOLIC ACID. [Concomitant]
     Active Substance: FOLIC ACID
     Dosage: 1 MG TABLET ORAL DAILY
     Route: 048
     Dates: start: 20200908
  9. ASPIRIN. [Concomitant]
     Active Substance: ASPIRIN
     Indication: ANTICOAGULANT THERAPY
     Route: 048
  10. PEPCID [Concomitant]
     Active Substance: FAMOTIDINE
     Dosage: SOLUTION 40MG/4ML INTRAVENOUS DAILY
     Route: 042
  11. METOPROLOL SUCCINATE ER [Concomitant]
     Active Substance: METOPROLOL SUCCINATE
     Route: 048
  12. CYANOCOBALAMIN. [Concomitant]
     Active Substance: CYANOCOBALAMIN
     Dosage: ONGOING: NO
     Route: 030
     Dates: start: 20200908, end: 20200908
  13. ROZLYTREK [Suspect]
     Active Substance: ENTRECTINIB
     Indication: NON-SMALL CELL LUNG CANCER
     Route: 048
     Dates: start: 2020
  14. PROCHLORPERAZINE MALEATE. [Concomitant]
     Active Substance: PROCHLORPERAZINE MALEATE
     Dosage: PRN
     Route: 048
     Dates: start: 20200908
  15. OXYBUTYNIN CHLORIDE. [Concomitant]
     Active Substance: OXYBUTYNIN CHLORIDE
     Dosage: 10 MG SR 24 HR ORAL DAILY
     Route: 048
  16. CRESTOR [Concomitant]
     Active Substance: ROSUVASTATIN CALCIUM
     Route: 048
  17. HYDROCHLOROTHIAZIDE. [Concomitant]
     Active Substance: HYDROCHLOROTHIAZIDE
     Route: 048
  18. ROSUVASTATIN CALCIUM. [Concomitant]
     Active Substance: ROSUVASTATIN CALCIUM
     Route: 048
  19. ROZLYTREK [Suspect]
     Active Substance: ENTRECTINIB
     Indication: CHOLANGIOCARCINOMA
     Dosage: 600 MG CAPSULES ORAL DAILY FOR 28 DAYS
     Route: 048
     Dates: start: 20200914
  20. BENZONATATE. [Concomitant]
     Active Substance: BENZONATATE
     Route: 048
  21. NEXIUM [Concomitant]
     Active Substance: ESOMEPRAZOLE MAGNESIUM
     Indication: GASTROOESOPHAGEAL REFLUX DISEASE
     Route: 048
  22. SERTRALINE HCL [Concomitant]
     Active Substance: SERTRALINE HYDROCHLORIDE
     Route: 048
  23. ROZLYTREK [Suspect]
     Active Substance: ENTRECTINIB
     Indication: BRONCHIAL CARCINOMA
     Dosage: TAKE 3 CAPSULES BY MOUTH DAILY: DRUG DISCONTINUED
     Route: 048
  24. ROZLYTREK [Suspect]
     Active Substance: ENTRECTINIB
     Indication: LUNG CARCINOMA CELL TYPE UNSPECIFIED STAGE IV
     Route: 048
     Dates: start: 202009
  25. PEPCID [Concomitant]
     Active Substance: FAMOTIDINE
     Route: 048
  26. SERTRALINE HCL [Concomitant]
     Active Substance: SERTRALINE HYDROCHLORIDE
     Indication: ANXIETY
     Route: 048

REACTIONS (5)
  - Cardiac failure congestive [Recovered/Resolved]
  - Lung disorder [Unknown]
  - Pericardial effusion [Unknown]
  - Hypotension [Recovered/Resolved]
  - Hypotension [Unknown]

NARRATIVE: CASE EVENT DATE: 202010
